FAERS Safety Report 4294596-0 (Version None)
Quarter: 2004Q1

REPORT INFORMATION
  Report Type: 
  Country: None (occurrence: None)
  Receive Date: 20040213
  Receipt Date: 20040202
  Transmission Date: 20041129
  Serious: Yes (Life-Threatening)
  Sender: FDA-Public Use
  Company Number: WAES 0402USA00339

PATIENT
  Age: 0 Day
  Sex: Male

DRUGS (1)
  1. INDOCIN [Suspect]
     Indication: OLIGOHYDRAMNIOS
     Dates: start: 19950421

REACTIONS (5)
  - GASTROINTESTINAL PERFORATION [None]
  - MATERNAL DRUGS AFFECTING FOETUS [None]
  - NEONATAL RESPIRATORY DISTRESS SYNDROME [None]
  - PATENT DUCTUS ARTERIOSUS [None]
  - PREMATURE BABY [None]
